FAERS Safety Report 5780433-1 (Version None)
Quarter: 2008Q2

REPORT INFORMATION
  Report Type: 
  Country: None (occurrence: None)
  Receive Date: 20080620
  Receipt Date: 20080617
  Transmission Date: 20081010
  Serious: Yes (Death, Hospitalization)
  Sender: FDA-Public Use
  Company Number: FR-JNJFOC-20080405665

PATIENT
  Age: 63 Year
  Sex: Male

DRUGS (6)
  1. OFLOCET [Suspect]
     Indication: INTERVERTEBRAL DISCITIS
     Route: 048
  2. OFLOCET [Suspect]
     Indication: ENDOCARDITIS
     Route: 048
  3. ORBENINE [Suspect]
     Indication: INTERVERTEBRAL DISCITIS
     Route: 042
  4. ORBENINE [Suspect]
     Indication: ENDOCARDITIS
     Route: 042
  5. DALACINE [Suspect]
     Indication: INTERVERTEBRAL DISCITIS
     Route: 042
  6. DALACINE [Suspect]
     Indication: ENDOCARDITIS
     Route: 042

REACTIONS (3)
  - CONVULSION [None]
  - RENAL FAILURE ACUTE [None]
  - VASCULAR PURPURA [None]
